FAERS Safety Report 25268580 (Version 1)
Quarter: 2025Q2

REPORT INFORMATION
  Report Type: Spontaneous
  Country: US (occurrence: None)
  Receive Date: 20250503
  Receipt Date: 20250503
  Transmission Date: 20250716
  Serious: Yes (Life-Threatening)
  Sender: FDA-CTU
  Company Number: None

PATIENT
  Age: 32 Year
  Sex: Female
  Weight: 44.1 kg

DRUGS (8)
  1. NURTEC ODT [Suspect]
     Active Substance: RIMEGEPANT SULFATE
     Indication: Migraine
     Route: 048
     Dates: start: 20250316, end: 20250322
  2. GABAPENTIN [Concomitant]
     Active Substance: GABAPENTIN
  3. BACLOFEN [Concomitant]
     Active Substance: BACLOFEN
  4. UNISOM SLEEPGELS NIGHTTIME SLEEP-AID [Concomitant]
     Active Substance: DIPHENHYDRAMINE HYDROCHLORIDE
  5. PANTOPRAZOLE [Concomitant]
     Active Substance: PANTOPRAZOLE
  6. PROPRANOLOL HYDROCHLORIDE [Concomitant]
     Active Substance: PROPRANOLOL HYDROCHLORIDE
  7. MONTELUKAST [Concomitant]
     Active Substance: MONTELUKAST
  8. NORA BE [Concomitant]
     Active Substance: NORETHINDRONE

REACTIONS (11)
  - Oropharyngeal pain [None]
  - Dyspnoea [None]
  - Pharyngeal swelling [None]
  - Migraine [None]
  - Nausea [None]
  - Feeling hot [None]
  - Hyperhidrosis [None]
  - Stomatitis [None]
  - Palpitations [None]
  - Heart rate increased [None]
  - Product formulation issue [None]

NARRATIVE: CASE EVENT DATE: 20250321
